FAERS Safety Report 4758134-8 (Version None)
Quarter: 2005Q3

REPORT INFORMATION
  Report Type: 
  Country: None (occurrence: None)
  Receive Date: 20050829
  Receipt Date: 20050823
  Transmission Date: 20060218
  Serious: Yes (Hospitalization, Other)
  Sender: FDA-Public Use
  Company Number: 2005-08-1611

PATIENT
  Age: 32 Year
  Sex: Female

DRUGS (8)
  1. CLARINEX [Suspect]
     Indication: HYPERSENSITIVITY
     Dosage: 5 MG QOD ORAL
     Route: 048
  2. CLARINEX [Suspect]
     Indication: PRURITUS
     Dosage: 5 MG QOD ORAL
     Route: 048
  3. CLARINEX [Suspect]
     Indication: URTICARIA
     Dosage: 5 MG QOD ORAL
     Route: 048
  4. IMOVANE QD [Concomitant]
  5. CIPRAMIL [Concomitant]
  6. PRIMPERAN INJ [Concomitant]
  7. NEXIUM [Concomitant]
  8. GAVISCON QD [Concomitant]

REACTIONS (1)
  - RECTAL CANCER [None]
